FAERS Safety Report 7258185-8 (Version None)
Quarter: 2011Q1

REPORT INFORMATION
  Report Type: 
  Country: None (occurrence: None)
  Receive Date: 20110129
  Receipt Date: 20100719
  Transmission Date: 20110831
  Serious: No
  Sender: FDA-Public Use
  Company Number: US-ABBOTT-10P-163-0660078-00

PATIENT
  Sex: Female
  Weight: 90.8 kg

DRUGS (23)
  1. SPIRONOLACTONE [Concomitant]
     Indication: CARDIAC FAILURE CONGESTIVE
  2. PREDNISONE [Concomitant]
  3. METHOTREXATE [Concomitant]
     Indication: RHEUMATOID ARTHRITIS
  4. CRESTOR [Concomitant]
     Indication: BLOOD CHOLESTEROL INCREASED
  5. HUMALIN INSULIN [Concomitant]
     Indication: DIABETES MELLITUS
     Dosage: AT BEDTIME
  6. PREVACID [Concomitant]
     Indication: GASTROOESOPHAGEAL REFLUX DISEASE
  7. METOPROLOL [Concomitant]
     Indication: HYPERTENSION
  8. PREDNISONE [Concomitant]
     Indication: PRODUCT USED FOR UNKNOWN INDICATION
  9. PREDNISONE [Concomitant]
     Dosage: ALTERNATING 10 MG ONE DAY AND 5 MG THE NEXT DAY
  10. BIDIL [Concomitant]
     Indication: ANGINA PECTORIS
  11. DIOVAN [Concomitant]
  12. NASACORT [Concomitant]
     Indication: HYPERSENSITIVITY
  13. ACTONEL [Concomitant]
     Indication: OSTEOPOROSIS
  14. NOVOLOG [Concomitant]
     Indication: DIABETES MELLITUS
     Dosage: GRADUATED SCALE
  15. ZOLOTAN EYE DROPS [Concomitant]
     Indication: GLAUCOMA
  16. GLIPIZIDE [Concomitant]
     Indication: DIABETES MELLITUS
  17. METFORMIN [Concomitant]
     Indication: DIABETES MELLITUS
  18. METOPROLOL [Concomitant]
     Indication: CARDIAC FAILURE CONGESTIVE
  19. DIOVAN [Concomitant]
     Indication: HYPERTENSION
     Dates: start: 20100201
  20. NIASPAN [Concomitant]
     Indication: BLOOD CHOLESTEROL INCREASED
  21. ALPHAGAN [Concomitant]
     Indication: GLAUCOMA
     Dosage: 1 DROP IN EACH EYE DAILY
  22. HUMIRA [Suspect]
     Indication: RHEUMATOID ARTHRITIS
     Dates: start: 20091001
  23. SPIRONOLACTONE [Concomitant]
     Indication: BLOOD POTASSIUM DECREASED

REACTIONS (1)
  - OEDEMA PERIPHERAL [None]
